FAERS Safety Report 9414975 (Version 3)
Quarter: 2013Q4

REPORT INFORMATION
  Report Type: Spontaneous
  Country: IT (occurrence: IT)
  Receive Date: 20130723
  Receipt Date: 20131028
  Transmission Date: 20140711
  Serious: Yes (Other)
  Sender: FDA-Public Use
  Company Number: IT-JNJFOC-20130708374

PATIENT
  Age: 37 Year
  Sex: Female
  Weight: 57 kg

DRUGS (4)
  1. HALDOL [Suspect]
     Indication: PRODUCT USED FOR UNKNOWN INDICATION
     Dosage: 1 AND A HALF BOTTLE
     Route: 048
     Dates: start: 20130711, end: 20130711
  2. TEGRETOL [Suspect]
     Indication: PRODUCT USED FOR UNKNOWN INDICATION
     Route: 048
     Dates: start: 20130711, end: 20130711
  3. ALCOHOL [Suspect]
     Indication: PRODUCT USED FOR UNKNOWN INDICATION
     Route: 065
     Dates: start: 20130711, end: 20130711
  4. CHLORPROMAZINE HYDROCHLORIDE [Suspect]
     Indication: PRODUCT USED FOR UNKNOWN INDICATION
     Route: 065
     Dates: start: 20130711, end: 20130711

REACTIONS (4)
  - Toxicity to various agents [Not Recovered/Not Resolved]
  - Self injurious behaviour [Unknown]
  - Sopor [Unknown]
  - Drug abuse [Unknown]
